FAERS Safety Report 7493634-1 (Version None)
Quarter: 2011Q2

REPORT INFORMATION
  Report Type: 
  Country: None (occurrence: None)
  Receive Date: 20110520
  Receipt Date: 20110507
  Transmission Date: 20111010
  Serious: Yes (Other)
  Sender: FDA-Public Use
  Company Number: US-JNJFOC-20110505124

PATIENT
  Age: 9 Year
  Sex: Male

DRUGS (5)
  1. INFLIXIMAB, RECOMBINANT [Suspect]
     Route: 042
  2. INFLIXIMAB, RECOMBINANT [Suspect]
     Route: 042
  3. IMMUNE GLOBULIN INTRAVENOUS (HUMAN) [Concomitant]
  4. IMMUNE GLOBULIN INTRAVENOUS (HUMAN) [Concomitant]
  5. INFLIXIMAB, RECOMBINANT [Suspect]
     Indication: IMMUNODEFICIENCY COMMON VARIABLE
     Route: 042

REACTIONS (3)
  - HYPOGAMMAGLOBULINAEMIA [None]
  - SINUSITIS [None]
  - THERAPEUTIC RESPONSE UNEXPECTED [None]
